FAERS Safety Report 15688402 (Version 1)
Quarter: 2018Q4

REPORT INFORMATION
  Report Type: Spontaneous
  Country: PT (occurrence: PT)
  Receive Date: 20181205
  Receipt Date: 20181205
  Transmission Date: 20190205
  Serious: Yes (Death, Other)
  Sender: FDA-Public Use
  Company Number: PT-AUROBINDO-AUR-APL-2018-057555

PATIENT
  Age: 56 Year
  Sex: Female

DRUGS (2)
  1. CETOROLAC GENERIS INJECTABLE SOLUTION [Suspect]
     Active Substance: KETOROLAC TROMETHAMINE
     Indication: MUSCULOSKELETAL PAIN
     Dosage: 1F IM TOMA UNICA
     Route: 030
     Dates: start: 20181106, end: 20181106
  2. RELMUS [Suspect]
     Active Substance: THIOCOLCHICOSIDE
     Indication: MUSCULOSKELETAL PAIN
     Dosage: 1F IM EM TOMA ?NICA
     Route: 030
     Dates: start: 20181106, end: 20181106

REACTIONS (1)
  - Cardiogenic shock [Fatal]

NARRATIVE: CASE EVENT DATE: 20181106
